FAERS Safety Report 20891575 (Version 1)
Quarter: 2022Q2

REPORT INFORMATION
  Report Type: Spontaneous
  Country: US (occurrence: US)
  Receive Date: 20220530
  Receipt Date: 20220530
  Transmission Date: 20220721
  Serious: No
  Sender: FDA-Public Use
  Company Number: US-BRISTOL-MYERS SQUIBB COMPANY-2022-034525

PATIENT
  Age: 65 Year
  Sex: Female
  Weight: 140.16 kg

DRUGS (1)
  1. REVLIMID [Suspect]
     Active Substance: LENALIDOMIDE
     Indication: Plasma cell myeloma
     Dosage: FREQ- DAILY * 21 DAYS ON AND 7 DAYS OFF
     Route: 048
     Dates: start: 20170227

REACTIONS (2)
  - Swelling [Recovered/Resolved]
  - Pain [Recovered/Resolved]
